FAERS Safety Report 8827496 (Version 1)
Quarter: 2012Q4

REPORT INFORMATION
  Report Type: 
  Country: US (occurrence: US)
  Receive Date: 20121008
  Receipt Date: 20121008
  Transmission Date: 20130627
  Serious: No
  Sender: FDA-Public Use
  Company Number: US-009507513-1210USA001917

PATIENT
  Age: 29 Year
  Sex: Female

DRUGS (3)
  1. JANUMET [Suspect]
     Indication: TYPE 2 DIABETES MELLITUS
     Dosage: 50/1000mg, bid
     Route: 048
  2. LANTUS [Concomitant]
  3. AMARYL [Concomitant]

REACTIONS (1)
  - Blood creatinine increased [Recovering/Resolving]
